FAERS Safety Report 17789632 (Version 1)
Quarter: 2020Q2

REPORT INFORMATION
  Report Type: Spontaneous
  Country: US (occurrence: US)
  Receive Date: 20200514
  Receipt Date: 20200514
  Transmission Date: 20200714
  Serious: No
  Sender: FDA-Public Use
  Company Number: US-TARO-2020TAR00623

PATIENT

DRUGS (1)
  1. TRETINOIN. [Suspect]
     Active Substance: TRETINOIN
     Indication: SKIN DISORDER
     Dosage: UNK
     Route: 065

REACTIONS (1)
  - Dry skin [Unknown]
